FAERS Safety Report 5013788-6 (Version None)
Quarter: 2006Q2

REPORT INFORMATION
  Report Type: 
  Country: None (occurrence: None)
  Receive Date: 20060526
  Receipt Date: 20060526
  Transmission Date: 20061013
  Serious: Yes (Other)
  Sender: FDA-Public Use
  Company Number: None

PATIENT
  Sex: Female
  Weight: 58.9676 kg

DRUGS (2)
  1. ESTRADOL      0.05      MYLAN [Suspect]
     Indication: HORMONE REPLACEMENT THERAPY
     Dosage: 0.05
  2. ESTRADOL      0.05      MYLAN [Suspect]
     Indication: HYSTERECTOMY
     Dosage: 0.05

REACTIONS (6)
  - APPLICATION SITE DERMATITIS [None]
  - APPLICATION SITE PAIN [None]
  - APPLICATION SITE PRURITUS [None]
  - APPLICATION SITE SCAR [None]
  - APPLICATION SITE URTICARIA [None]
  - PHARMACEUTICAL PRODUCT COMPLAINT [None]
